FAERS Safety Report 8928757 (Version 1)
Quarter: 2012Q4

REPORT INFORMATION
  Report Type: 
  Country: JP (occurrence: JP)
  Receive Date: 20121128
  Receipt Date: 20121128
  Transmission Date: 20130627
  Serious: Yes (Hospitalization, Other)
  Sender: FDA-Public Use
  Company Number: JP-009507513-2012SP036761

PATIENT
  Age: 74 Year
  Sex: Male
  Weight: 60 kg

DRUGS (10)
  1. PEGINTRON [Suspect]
     Indication: HEPATITIS C
     Dosage: 1.3 ?g/kg, QW
     Route: 058
     Dates: start: 20120307
  2. PEGINTRON [Suspect]
     Dosage: 1.5 ?g/kg, QW
     Route: 058
  3. REBETOL [Suspect]
     Indication: HEPATITIS C
     Dosage: 400 mg, QD
     Route: 048
     Dates: start: 20120307, end: 20120322
  4. REBETOL [Suspect]
     Dosage: 200 mg, QD
     Route: 048
     Dates: start: 20120323, end: 20120521
  5. REBETOL [Suspect]
     Dosage: 100 mg, QD
     Route: 048
     Dates: start: 20120522, end: 20120525
  6. REBETOL [Suspect]
     Dosage: 200 mg, qd
     Route: 048
     Dates: start: 20120612
  7. TELAVIC [Suspect]
     Indication: CHRONIC HEPATITIS C
     Dosage: 1500 mg, QD
     Route: 048
     Dates: start: 20120307, end: 20120514
  8. URSO [Concomitant]
     Indication: CHRONIC HEPATITIS C
     Dosage: 300 mg, qd
     Route: 048
     Dates: end: 20120424
  9. PROHEPARUM [Concomitant]
     Indication: CHRONIC HEPATITIS C
     Dosage: 6 DF, QD
     Route: 048
     Dates: end: 20120424
  10. ADALAT L [Concomitant]
     Indication: HYPERTENSION
     Dosage: 10 mg, qd
     Dates: start: 20120724

REACTIONS (2)
  - Renal impairment [Recovered/Resolved]
  - Emphysema [Recovering/Resolving]
